FAERS Safety Report 4444618-9 (Version None)
Quarter: 2004Q3

REPORT INFORMATION
  Report Type: 
  Country: None (occurrence: None)
  Receive Date: 20040909
  Receipt Date: 20040722
  Transmission Date: 20050211
  Serious: Yes (Disabling)
  Sender: FDA-Public Use
  Company Number: 200417254GDDC

PATIENT
  Age: 86 Year
  Sex: Female

DRUGS (7)
  1. KETEK [Suspect]
     Indication: AGITATION
     Route: 048
     Dates: start: 20040608, end: 20040609
  2. KETEK [Suspect]
     Indication: BRONCHITIS
     Route: 048
     Dates: start: 20040608, end: 20040609
  3. RISPERDAL [Concomitant]
     Indication: DEMENTIA
     Route: 048
  4. LASIX [Concomitant]
     Indication: CARDIOMYOPATHY
     Route: 048
  5. PREDNISONE [Concomitant]
     Indication: CHRONIC OBSTRUCTIVE AIRWAYS DISEASE
     Route: 048
  6. SLOW-K [Concomitant]
     Indication: CARDIOMYOPATHY
     Route: 048
  7. ELTROXIN [Concomitant]
     Indication: HYPOTHYROIDISM
     Route: 048

REACTIONS (4)
  - COGWHEEL RIGIDITY [None]
  - EXTRAPYRAMIDAL DISORDER [None]
  - GAIT DISTURBANCE [None]
  - TREMOR [None]
